FAERS Safety Report 13029867 (Version 1)
Quarter: 2016Q4

REPORT INFORMATION
  Report Type: Spontaneous
  Country: US (occurrence: US)
  Receive Date: 20161214
  Receipt Date: 20161214
  Transmission Date: 20170207
  Serious: Yes (Life-Threatening, Hospitalization)
  Sender: FDA-Public Use
  Company Number: None

PATIENT
  Age: 62 Year
  Sex: Female
  Weight: 100.8 kg

DRUGS (1)
  1. VANCOMYCIN [Suspect]
     Active Substance: VANCOMYCIN
     Indication: OSTEOMYELITIS
     Dosage: INTRAVENOUS (NOT OTHERWISE SPECIFIED)
     Route: 042
     Dates: start: 20161123, end: 20161123

REACTIONS (7)
  - Erythema [None]
  - Swelling face [None]
  - Pruritus generalised [None]
  - Dizziness [None]
  - Anaphylactic reaction [None]
  - Dyspnoea [None]
  - Stridor [None]

NARRATIVE: CASE EVENT DATE: 20161123
